FAERS Safety Report 26115269 (Version 1)
Quarter: 2025Q4

REPORT INFORMATION
  Report Type: Spontaneous
  Country: EU (occurrence: EU)
  Receive Date: 20251203
  Receipt Date: 20251203
  Transmission Date: 20260118
  Serious: Yes (Other)
  Sender: CSL BEHRING
  Company Number: EU-BEH-2025227448

PATIENT
  Age: 29 Year
  Sex: Male
  Weight: 52 kg

DRUGS (3)
  1. HIZENTRA [Suspect]
     Active Substance: HUMAN IMMUNOGLOBULIN G
     Indication: Immunodeficiency common variable
     Dosage: 8 G, QW
     Route: 065
     Dates: start: 201812
  2. HIZENTRA [Suspect]
     Active Substance: HUMAN IMMUNOGLOBULIN G
     Dosage: 8 G (40 ML) QOW(14DAYS)
     Route: 065
  3. HIZENTRA [Suspect]
     Active Substance: HUMAN IMMUNOGLOBULIN G
     Dosage: UNK
     Route: 065
     Dates: start: 202510

REACTIONS (6)
  - Embolia cutis medicamentosa [Not Recovered/Not Resolved]
  - Ischaemia [Not Recovered/Not Resolved]
  - Infusion site discolouration [Unknown]
  - Infusion site scab [Not Recovered/Not Resolved]
  - Administration site wound [Unknown]
  - Infusion site vesicles [Unknown]
